FAERS Safety Report 12534303 (Version 1)
Quarter: 2016Q3

REPORT INFORMATION
  Report Type: Spontaneous
  Country: US (occurrence: US)
  Receive Date: 20160706
  Receipt Date: 20160706
  Transmission Date: 20161109
  Serious: No
  Sender: FDA-Public Use
  Company Number: US-PURDUE-USA-2016-0131133

PATIENT
  Age: 84 Year
  Sex: Male

DRUGS (1)
  1. BUTRANS [Suspect]
     Active Substance: BUPRENORPHINE
     Indication: PAIN
     Dosage: 5 MCG/HR, WEEKLY
     Route: 062
     Dates: start: 20160504, end: 20160518

REACTIONS (7)
  - Coordination abnormal [Not Recovered/Not Resolved]
  - Feeling drunk [Not Recovered/Not Resolved]
  - Drug effect increased [Recovered/Resolved]
  - Inadequate analgesia [Recovered/Resolved]
  - Impaired driving ability [Not Recovered/Not Resolved]
  - Thinking abnormal [Not Recovered/Not Resolved]
  - Blood glucose decreased [Recovered/Resolved]

NARRATIVE: CASE EVENT DATE: 201605
